FAERS Safety Report 15103190 (Version 1)
Quarter: 2018Q3

REPORT INFORMATION
  Report Type: Report from Study
  Country: AU (occurrence: AU)
  Receive Date: 20180703
  Receipt Date: 20180703
  Transmission Date: 20181010
  Serious: Yes (Life-Threatening, Hospitalization)
  Sender: FDA-Public Use
  Company Number: AU-MYLANLABS-2018M1046784

PATIENT
  Age: 64 Year
  Sex: Male

DRUGS (2)
  1. PROPRANOLOL [Suspect]
     Active Substance: PROPRANOLOL HYDROCHLORIDE
     Indication: PRODUCT USED FOR UNKNOWN INDICATION
     Route: 048
  2. INSULIN GLARGINE [Suspect]
     Active Substance: INSULIN GLARGINE
     Indication: CARDIOTOXICITY
     Dosage: 150 UNITS/HOUR (2 UNITS/KG/HOUR)
     Route: 050

REACTIONS (3)
  - Hypoglycaemia [Unknown]
  - Overdose [Unknown]
  - Cardiotoxicity [Unknown]
